FAERS Safety Report 4637127-5 (Version None)
Quarter: 2005Q2

REPORT INFORMATION
  Report Type: 
  Country: None (occurrence: None)
  Receive Date: 20050325
  Receipt Date: 20041230
  Transmission Date: 20051028
  Serious: No
  Sender: FDA-Public Use
  Company Number: USA040875025

PATIENT
  Age: 86 Year
  Sex: Female

DRUGS (14)
  1. FORTEO [Suspect]
     Indication: OSTEOPOROSIS
     Dates: start: 20040804
  2. OYSTER SHELL CALCIUM (CALCIUM CARBONATE) [Concomitant]
  3. MULTIVITAMIN WITH MINERALS [Concomitant]
  4. TUMS (CALCIUM CARBONATE) [Concomitant]
  5. VIT C TAB [Concomitant]
  6. VITAMIN D [Concomitant]
  7. GLUCOSAMINE CHONDROITIN [Concomitant]
  8. ATENOLOL [Concomitant]
  9. WARFARIN SODIUM [Concomitant]
  10. VITAMIN E [Concomitant]
  11. HYDROCHLOROTHIAZIDE [Concomitant]
  12. QUININE [Concomitant]
  13. CITRACAL (CALCIUM CITRATE) [Concomitant]
  14. FOSAMAX [Concomitant]

REACTIONS (7)
  - ARTHRITIS [None]
  - CONSTIPATION [None]
  - HAND DEFORMITY [None]
  - JOINT RANGE OF MOTION DECREASED [None]
  - RETCHING [None]
  - STOMACH DISCOMFORT [None]
  - WEIGHT INCREASED [None]
